FAERS Safety Report 5121481-4 (Version None)
Quarter: 2006Q4

REPORT INFORMATION
  Report Type: 
  Country: None (occurrence: None)
  Receive Date: 20061006
  Receipt Date: 20060707
  Transmission Date: 20070319
  Serious: Yes (Death)
  Sender: FDA-Public Use
  Company Number: PHRM2006FR02022

PATIENT
  Age: 71 Year
  Sex: Male

DRUGS (1)
  1. AREDIA [Suspect]
     Indication: OSTEOARTHRITIS
     Dosage: UNK, UNK
     Route: 042
     Dates: end: 20060101

REACTIONS (4)
  - CARDIAC FAILURE [None]
  - CARDIOMYOPATHY [None]
  - CONDITION AGGRAVATED [None]
  - RENAL FAILURE [None]
